FAERS Safety Report 18736176 (Version 2)
Quarter: 2021Q2

REPORT INFORMATION
  Report Type: Spontaneous
  Country: US (occurrence: US)
  Receive Date: 20210113
  Receipt Date: 20210525
  Transmission Date: 20210717
  Serious: No
  Sender: FDA-Public Use
  Company Number: US-PFIZER INC-2021014021

PATIENT
  Age: 78 Year
  Sex: Female

DRUGS (1)
  1. IBRANCE [Suspect]
     Active Substance: PALBOCICLIB
     Indication: BREAST CANCER FEMALE
     Dosage: 75 MG, CYCLIC (75 MG, ONCE A DAY FOR 21 DAYS Q 28 DAYS)
     Dates: start: 20180120

REACTIONS (2)
  - Product dose omission issue [Unknown]
  - Nausea [Not Recovered/Not Resolved]
